FAERS Safety Report 19761846 (Version 1)
Quarter: 2021Q3

REPORT INFORMATION
  Report Type: Spontaneous
  Country: US (occurrence: US)
  Receive Date: 20210829
  Receipt Date: 20210829
  Transmission Date: 20211014
  Serious: Yes (Disabling)
  Sender: FDA-Public Use
  Company Number: None

PATIENT
  Age: 31 Year
  Sex: Female
  Weight: 81 kg

DRUGS (4)
  1. TRIAMCINOLONE [Suspect]
     Active Substance: TRIAMCINOLONE
     Indication: BACK PAIN
     Dates: start: 20200821, end: 20200904
  2. MULTIVITAMIN [Concomitant]
     Active Substance: VITAMINS
  3. TRIAMCINOLONE [Suspect]
     Active Substance: TRIAMCINOLONE
     Indication: RADICULOPATHY
     Dates: start: 20200821, end: 20200904
  4. NEXPLANON [Concomitant]
     Active Substance: ETONOGESTREL

REACTIONS (12)
  - Weight increased [None]
  - Menstruation irregular [None]
  - Irritability [None]
  - Blood testosterone decreased [None]
  - Asthenia [None]
  - Cortisol increased [None]
  - Rash [None]
  - Temperature intolerance [None]
  - Skin disorder [None]
  - Alopecia [None]
  - Depression [None]
  - Fatigue [None]

NARRATIVE: CASE EVENT DATE: 20201001
